FAERS Safety Report 10361092 (Version 1)
Quarter: 2014Q3

REPORT INFORMATION
  Report Type: Spontaneous
  Country: IT (occurrence: IT)
  Receive Date: 20140804
  Receipt Date: 20140804
  Transmission Date: 20150326
  Serious: Yes (Other)
  Sender: FDA-Public Use
  Company Number: PHHY2014IT093055

PATIENT
  Age: 16 Year
  Sex: Male

DRUGS (1)
  1. CLOZAPINA HEXAL [Suspect]
     Active Substance: CLOZAPINE
     Indication: LISSENCEPHALY
     Dosage: 100 MG, QD
     Route: 048
     Dates: start: 20140627, end: 20140628

REACTIONS (3)
  - Rash [Recovered/Resolved]
  - Hypersensitivity [Recovered/Resolved]
  - Pruritus [Recovered/Resolved]

NARRATIVE: CASE EVENT DATE: 20140628
